FAERS Safety Report 23794903 (Version 5)
Quarter: 2024Q4

REPORT INFORMATION
  Report Type: Spontaneous
  Country: CZ (occurrence: CZ)
  Receive Date: 20240429
  Receipt Date: 20241114
  Transmission Date: 20250114
  Serious: Yes (Hospitalization, Other)
  Sender: MYLAN
  Company Number: CZ-MYLANLABS-2024M1037834

PATIENT
  Sex: Female

DRUGS (10)
  1. PREGABALIN [Suspect]
     Active Substance: PREGABALIN
     Indication: Generalised anxiety disorder
     Dosage: 1000 MILLIGRAM, QD (ONE DAILY DOSE IN THE MORNING)
     Route: 065
  2. PREGABALIN [Suspect]
     Active Substance: PREGABALIN
     Dosage: 750 MILLIGRAM, QD (ONE DAILY DOSE IN THE MORNING)
     Route: 065
  3. PREGABALIN [Suspect]
     Active Substance: PREGABALIN
     Dosage: 150 MILLIGRAM, QD (5-0-0)
     Route: 065
  4. PREGABALIN [Suspect]
     Active Substance: PREGABALIN
     Dosage: 600 MILLIGRAM, QD (INCREASED)
     Route: 065
  5. PREGABALIN [Suspect]
     Active Substance: PREGABALIN
     Dosage: 300 MILLIGRAM, QD (1-0-1)
     Route: 065
  6. PREGABALIN [Suspect]
     Active Substance: PREGABALIN
     Dosage: 600 MILLIGRAM
     Route: 065
  7. PREGABALIN [Suspect]
     Active Substance: PREGABALIN
     Dosage: UNK UNK, QD (750-1,000 MG IN ONE DAILY DOSE)
     Route: 065
  8. ALCOHOL [Suspect]
     Active Substance: ALCOHOL
     Indication: Product used for unknown indication
     Dosage: UNK
     Route: 065
  9. CLONAZEPAM [Suspect]
     Active Substance: CLONAZEPAM
     Indication: Product used for unknown indication
     Dosage: 2-4 MILLIGRAM
     Route: 065
  10. OXAZEPAM [Suspect]
     Active Substance: OXAZEPAM
     Indication: Product used for unknown indication
     Dosage: UNK
     Route: 065

REACTIONS (13)
  - Withdrawal syndrome [Unknown]
  - Therapy change [Unknown]
  - Drug dependence [Unknown]
  - Drug abuse [Not Recovered/Not Resolved]
  - Tremor [Unknown]
  - Conjunctival hyperaemia [Unknown]
  - Tension [Unknown]
  - Anxiety [Unknown]
  - Hyperhidrosis [Unknown]
  - Insomnia [Unknown]
  - Intentional product use issue [Not Recovered/Not Resolved]
  - Intentional product misuse [Unknown]
  - Intentional overdose [Not Recovered/Not Resolved]
